FAERS Safety Report 7736245-2 (Version None)
Quarter: 2011Q3

REPORT INFORMATION
  Report Type: 
  Country: None (occurrence: None)
  Receive Date: 20110902
  Receipt Date: 20110817
  Transmission Date: 20111222
  Serious: Yes (Other)
  Sender: FDA-Public Use
  Company Number: JPI-P-002606

PATIENT
  Age: 64 Year
  Sex: Male

DRUGS (4)
  1. MODAFINIL [Concomitant]
  2. CLOMIPRAMINE HCL [Concomitant]
  3. XYREM [Suspect]
     Indication: NARCOLEPSY
     Dosage: 4.5 GM (2.25 GM, 2 IN 1 D), ORAL, 200 MG, ORAL, 400 MG (400 MG, 1 IN 1 D
     Route: 048
     Dates: start: 20071004, end: 20071222
  4. XYREM [Suspect]
     Indication: CATAPLEXY
     Dosage: 4.5 GM (2.25 GM, 2 IN 1 D), ORAL, 200 MG, ORAL, 400 MG (400 MG, 1 IN 1 D
     Route: 048
     Dates: start: 20071004, end: 20071222

REACTIONS (6)
  - SLEEP PARALYSIS [None]
  - NIGHTMARE [None]
  - AGE-RELATED MACULAR DEGENERATION [None]
  - MUSCLE SPASMS [None]
  - HEADACHE [None]
  - HYPNAGOGIC HALLUCINATION [None]
